FAERS Safety Report 15635854 (Version 6)
Quarter: 2020Q3

REPORT INFORMATION
  Report Type: Other
  Country: CA (occurrence: CA)
  Receive Date: 20181120
  Receipt Date: 20200930
  Transmission Date: 20201102
  Serious: Yes (Other)
  Sender: FDA-Public Use
  Company Number: CA-ROCHE-2214373

PATIENT
  Age: 45 Year
  Sex: Female

DRUGS (3)
  1. SANDOZ AMLODIPINE [Concomitant]
     Active Substance: AMLODIPINE MALEATE
  2. OCREVUS [Suspect]
     Active Substance: OCRELIZUMAB
     Dosage: 600 MG EVERY 6 MONTH
     Route: 042
  3. OCREVUS [Suspect]
     Active Substance: OCRELIZUMAB
     Indication: RELAPSING-REMITTING MULTIPLE SCLEROSIS
     Dosage: AT DAY 0 AND 14, THEN 600 MG EVERY 6 MONTH
     Route: 042
     Dates: start: 20180510

REACTIONS (2)
  - Urinary tract infection [Recovered/Resolved]
  - Malaise [Unknown]

NARRATIVE: CASE EVENT DATE: 201908
